FAERS Safety Report 23641041 (Version 1)
Quarter: 2024Q1

REPORT INFORMATION
  Report Type: Spontaneous
  Country: FR (occurrence: FR)
  Receive Date: 20240318
  Receipt Date: 20240318
  Transmission Date: 20240410
  Serious: Yes (Hospitalization)
  Sender: FDA-Public Use
  Company Number: None

PATIENT
  Age: 50 Year
  Sex: Female
  Weight: 73 kg

DRUGS (5)
  1. KEPPRA [Suspect]
     Active Substance: LEVETIRACETAM
     Indication: Wrong patient received product
     Dosage: 750 MILLIGRAM 1 TOTAL
     Route: 048
     Dates: start: 20240109, end: 20240109
  2. TIAPRIDE HYDROCHLORIDE [Suspect]
     Active Substance: TIAPRIDE HYDROCHLORIDE
     Indication: Wrong patient received product
     Dosage: 100 MILLIGRAM 1 TOTAL SCORED TABLETS
     Route: 048
     Dates: start: 20240109, end: 20240109
  3. RIVOTRIL [Suspect]
     Active Substance: CLONAZEPAM
     Indication: Wrong patient received product
     Dosage: 2 MILLIGRAM 1 TOTAL CROSS-SCORED TABLETS
     Route: 048
     Dates: start: 20240109, end: 20240109
  4. CYAMEMAZINE [Suspect]
     Active Substance: CYAMEMAZINE
     Indication: Wrong patient received product
     Dosage: 150 MILLIGRAM 1 TOTAL  SCORED FILM-COATED TABLETS
     Route: 048
     Dates: start: 20240109, end: 20240109
  5. BROMAZEPAM [Suspect]
     Active Substance: BROMAZEPAM
     Indication: Wrong patient received product
     Dosage: 3 MILLIGRAM 1 TOTAL CROSS-SCORED TABLETS
     Route: 048
     Dates: start: 20240109, end: 20240109

REACTIONS (4)
  - Hypotension [Recovered/Resolved]
  - Somnolence [Recovered/Resolved]
  - Agitation [Recovered/Resolved]
  - Wrong patient received product [Unknown]

NARRATIVE: CASE EVENT DATE: 20240109
